FAERS Safety Report 9735122 (Version 1)
Quarter: 2013Q4

REPORT INFORMATION
  Report Type: Spontaneous
  Country: US (occurrence: None)
  Receive Date: 20131204
  Receipt Date: 20131204
  Transmission Date: 20140711
  Serious: Yes (Death)
  Sender: FDA-Public Use
  Company Number: UTC-041013

PATIENT
  Age: 72 Year
  Sex: Male

DRUGS (11)
  1. TYVASO (6 MICROGRAM, AEROSOL FOR INHALATION) (TREPROSTINIL SODIUM) [Suspect]
     Indication: PULMONARY ARTERIAL HYPERTENSION
     Dosage: 288 MCG (72 MCG, 4 IN 1 D)
     Route: 055
     Dates: start: 201207
  2. REVATIO (SILDENAFIL CITRATE) (UNKNOWN) [Concomitant]
  3. LASIX (FUROSEMIDE) (UNKNOWN) [Concomitant]
  4. POTASSIUM (UNKNOWN) [Concomitant]
  5. CRESTOR (ROSUVASTATIN CALCIUM) (UNKNOWN) [Concomitant]
  6. SEROQUEL (QUETIAPINE FUMARATE) (UNKNOWN) [Concomitant]
  7. LOSARTAN (UNKNOWN) [Concomitant]
  8. ASPIRIN (ACETYLSALICYLIC ACID) (UNKNOWN) (ACETYLSALICYLIC ACID) [Concomitant]
  9. SPYRIVA (TIOTROPIUM BROMIDE) (UNKNOWN) [Concomitant]
  10. ADVAIR (FLITICASONE) (UNKNOWN) [Concomitant]
  11. CARVEDILOL (UNKNOWN) [Concomitant]

REACTIONS (1)
  - Death [None]
